FAERS Safety Report 25164206 (Version 2)
Quarter: 2025Q2

REPORT INFORMATION
  Report Type: Spontaneous
  Country: NL (occurrence: NL)
  Receive Date: 20250405
  Receipt Date: 20250415
  Transmission Date: 20250716
  Serious: No
  Sender: UCB
  Company Number: NL-UCBSA-2025018504

PATIENT
  Sex: Female

DRUGS (1)
  1. NEUPRO [Suspect]
     Active Substance: ROTIGOTINE
     Indication: Product used for unknown indication
     Route: 062

REACTIONS (2)
  - Product adhesion issue [Unknown]
  - Incorrect dose administered [Unknown]
